FAERS Safety Report 5029973-3 (Version None)
Quarter: 2006Q2

REPORT INFORMATION
  Report Type: 
  Country: None (occurrence: None)
  Receive Date: 20060614
  Receipt Date: 20060602
  Transmission Date: 20061013
  Serious: Yes (Other)
  Sender: FDA-Public Use
  Company Number: US-CVT-061218

PATIENT
  Age: 57 Year
  Sex: Male
  Weight: 103.4 kg

DRUGS (19)
  1. RANEXA [Suspect]
     Indication: ANGINA PECTORIS
     Dosage: 500 MG, BID, ORAL
     Route: 048
     Dates: start: 20060329, end: 20060419
  2. LIPITOR/01326101/(ATORVASTATIN) [Concomitant]
  3. ACTOS /01460201/ (PIOGLITAZONE) [Concomitant]
  4. STARLIX [Concomitant]
  5. VERELAN (VERAPAMIL HYDROCHLORIDE) [Concomitant]
  6. PLAVIX [Concomitant]
  7. BYETTA [Concomitant]
  8. NITROGLYCERIN [Concomitant]
  9. ZOLOFT [Concomitant]
  10. PROTONIX /01263201/ (PANTOPRAZOLE) [Concomitant]
  11. NEURONTIN [Concomitant]
  12. ZETIA [Concomitant]
  13. ADVAIR DISKUS 100/50 [Concomitant]
  14. SPIRIVA [Concomitant]
  15. ALTACE [Concomitant]
  16. XOPENEX [Concomitant]
  17. ZYRTEC [Concomitant]
  18. CEREFOLIN [Concomitant]
  19. HYDROCHLOROTHIAZIDE [Concomitant]

REACTIONS (7)
  - ABDOMINAL DISTENSION [None]
  - BLOOD GLUCOSE INCREASED [None]
  - FATIGUE [None]
  - HEPATIC STEATOSIS [None]
  - HEPATOMEGALY [None]
  - HERPES ZOSTER [None]
  - WHITE BLOOD CELL COUNT INCREASED [None]
